FAERS Safety Report 20125750 (Version 1)
Quarter: 2021Q4

REPORT INFORMATION
  Report Type: Spontaneous
  Country: US (occurrence: US)
  Receive Date: 20211129
  Receipt Date: 20211129
  Transmission Date: 20220303
  Serious: Yes (Other)
  Sender: FDA-Public Use
  Company Number: US-PFIZER INC-202101606254

PATIENT
  Age: 56 Year
  Sex: Male

DRUGS (2)
  1. IBRANCE [Suspect]
     Active Substance: PALBOCICLIB
     Indication: Breast cancer male
     Dosage: 125 MG
     Dates: start: 20211001, end: 20211115
  2. IBRANCE [Suspect]
     Active Substance: PALBOCICLIB
     Indication: Metastases to bone

REACTIONS (2)
  - Haemorrhage [Unknown]
  - Neoplasm progression [Unknown]
